FAERS Safety Report 6174574-7 (Version None)
Quarter: 2009Q2

REPORT INFORMATION
  Report Type: 
  Country: None (occurrence: None)
  Receive Date: 20090430
  Receipt Date: 20080801
  Transmission Date: 20091009
  Serious: No
  Sender: FDA-Public Use
  Company Number: US-ASTRAZENECA-2008UW15806

PATIENT
  Age: 54 Year
  Sex: Female
  Weight: 54.4 kg

DRUGS (26)
  1. NEXIUM [Suspect]
     Indication: GASTROOESOPHAGEAL REFLUX DISEASE
     Route: 048
     Dates: start: 20050101
  2. NEXIUM [Suspect]
     Indication: GASTRIC ULCER
     Route: 048
     Dates: start: 20050101
  3. NEXIUM [Suspect]
     Route: 048
     Dates: start: 20060101
  4. NEXIUM [Suspect]
     Route: 048
     Dates: start: 20060101
  5. ASMANEX TWISTHALER [Concomitant]
  6. ADVAIR DISKUS 100/50 [Concomitant]
  7. ASTELIN [Concomitant]
  8. FLUTICASONE [Concomitant]
  9. PROAIR HFA [Concomitant]
  10. SINGULAIR [Concomitant]
  11. FEXOFENADINE [Concomitant]
  12. ARICEPT [Concomitant]
  13. IMITREX [Concomitant]
  14. CYMBALTA [Concomitant]
  15. TRAMADOL HCL [Concomitant]
  16. LYRICA [Concomitant]
  17. SYNTHROID [Concomitant]
  18. VITAMIN TAB [Concomitant]
  19. VALIUM [Concomitant]
  20. REQUIP [Concomitant]
  21. ENALAPRIL [Concomitant]
  22. GUAIFENESIN [Concomitant]
  23. NORVASC [Concomitant]
  24. ENDOCET [Concomitant]
  25. OXYBUTYNIN CHLORIDE [Concomitant]
  26. ALLERGY SHOTS [Concomitant]

REACTIONS (1)
  - TONGUE ULCERATION [None]
